FAERS Safety Report 10345852 (Version 1)
Quarter: 2014Q3

REPORT INFORMATION
  Report Type: Report from Study
  Country: US (occurrence: US)
  Receive Date: 20140728
  Receipt Date: 20140728
  Transmission Date: 20150326
  Serious: Yes (Other)
  Sender: FDA-Public Use
  Company Number: US-BRISTOL-MYERS SQUIBB COMPANY-21228960

PATIENT
  Age: 67 Year
  Sex: Female
  Weight: 73.47 kg

DRUGS (15)
  1. ASPIRIN. [Concomitant]
     Active Substance: ASPIRIN
  2. ESTROVEN [Concomitant]
  3. CITALOPRAM [Concomitant]
     Active Substance: CITALOPRAM HYDROBROMIDE
  4. FOLIC ACID. [Concomitant]
     Active Substance: FOLIC ACID
  5. CALCIUM [Concomitant]
     Active Substance: CALCIUM
  6. METOPROLOL [Concomitant]
     Active Substance: METOPROLOL
  7. ATORVASTATIN [Concomitant]
     Active Substance: ATORVASTATIN
  8. PREDNISONE. [Concomitant]
     Active Substance: PREDNISONE
  9. ALLEGRA-D [Concomitant]
     Active Substance: FEXOFENADINE\PSEUDOEPHEDRINE
  10. HYDROCHLOROTHIAZIDE. [Concomitant]
     Active Substance: HYDROCHLOROTHIAZIDE
  11. ISOSORBIDE MONONITRATE. [Concomitant]
     Active Substance: ISOSORBIDE MONONITRATE
  12. LEFLUNOMIDE. [Concomitant]
     Active Substance: LEFLUNOMIDE
  13. ACYCLOVIR. [Concomitant]
     Active Substance: ACYCLOVIR
  14. ORENCIA [Suspect]
     Active Substance: ABATACEPT
     Indication: RHEUMATOID ARTHRITIS
     Dates: start: 201312
  15. VITAMIN [Concomitant]
     Active Substance: VITAMINS

REACTIONS (2)
  - Intervertebral disc protrusion [Unknown]
  - Nerve injury [Unknown]
